FAERS Safety Report 14513063 (Version 1)
Quarter: 2018Q1

REPORT INFORMATION
  Report Type: Spontaneous
  Country: US (occurrence: US)
  Receive Date: 20180208
  Receipt Date: 20180208
  Transmission Date: 20180509
  Serious: Yes (Other)
  Sender: FDA-Public Use
  Company Number: None

PATIENT
  Age: 75 Year
  Sex: Male
  Weight: 97.65 kg

DRUGS (17)
  1. DEXAMETHASONE. [Concomitant]
     Active Substance: DEXAMETHASONE
  2. HYDROMORPHONE [Concomitant]
     Active Substance: HYDROMORPHONE
  3. LOVENOX [Concomitant]
     Active Substance: ENOXAPARIN SODIUM
  4. ASPIRIN. [Concomitant]
     Active Substance: ASPIRIN
  5. DARATUMUMAB [Concomitant]
     Active Substance: DARATUMUMAB
  6. LIPITOR [Concomitant]
     Active Substance: ATORVASTATIN CALCIUM
  7. NEXIUM [Concomitant]
     Active Substance: ESOMEPRAZOLE MAGNESIUM
  8. VITAMIN B12 [Concomitant]
     Active Substance: CYANOCOBALAMIN
  9. ZETIA [Concomitant]
     Active Substance: EZETIMIBE
  10. LEVOTHYROXINE. [Concomitant]
     Active Substance: LEVOTHYROXINE
  11. ONDANSETRON [Concomitant]
     Active Substance: ONDANSETRON
  12. PROBIOTIC ADVANCED [Concomitant]
  13. NINLARO [Suspect]
     Active Substance: IXAZOMIB CITRATE
     Indication: PLASMA CELL MYELOMA
     Dosage: ?          OTHER FREQUENCY:ONCE WEEKLY;?
     Route: 048
     Dates: start: 20171221, end: 20180208
  14. DIAZEPAM. [Concomitant]
     Active Substance: DIAZEPAM
  15. LISINOPRIL. [Suspect]
     Active Substance: LISINOPRIL
  16. ONE DAILY VITAMIN [Concomitant]
  17. VITAMIN D2 [Concomitant]
     Active Substance: ERGOCALCIFEROL

REACTIONS (1)
  - Disease progression [None]
